FAERS Safety Report 5415953-2 (Version None)
Quarter: 2007Q3

REPORT INFORMATION
  Report Type: 
  Country: None (occurrence: None)
  Receive Date: 20070718
  Receipt Date: 20070109
  Transmission Date: 20080115
  Serious: Yes (Death, Other)
  Sender: FDA-Public Use
  Company Number: 2007003107

PATIENT
  Sex: Female

DRUGS (2)
  1. CELEBREX [Suspect]
     Dates: start: 20040901, end: 20041201
  2. VIOXX [Suspect]
     Dates: start: 20010101, end: 20040901

REACTIONS (2)
  - CEREBROVASCULAR ACCIDENT [None]
  - MYOCARDIAL INFARCTION [None]
